FAERS Safety Report 5240820-7 (Version None)
Quarter: 2007Q1

REPORT INFORMATION
  Report Type: 
  Country: None (occurrence: None)
  Receive Date: 20061208
  Receipt Date: 20050506
  Transmission Date: 20070707
  Serious: Yes (Other)
  Sender: FDA-Public Use
  Company Number: 2005UW07105

PATIENT
  Age: 66 Year
  Sex: Male
  Weight: 89.357 kg

DRUGS (8)
  1. CRESTOR [Suspect]
     Indication: HYPERCHOLESTEROLAEMIA
     Dosage: 20 MG QD PO
     Route: 048
  2. VESACARE [Concomitant]
  3. PROSCAR [Concomitant]
  4. PROZAC [Concomitant]
  5. ADVIL [Concomitant]
  6. GARLIC [Concomitant]
  7. ASCORBIC ACID [Concomitant]
  8. MULTI-VITAMINS [Concomitant]

REACTIONS (6)
  - ARTHRALGIA [None]
  - BACK PAIN [None]
  - FALL [None]
  - FEELING ABNORMAL [None]
  - MYALGIA [None]
  - PAIN IN EXTREMITY [None]
